FAERS Safety Report 22235495 (Version 1)
Quarter: 2023Q2

REPORT INFORMATION
  Report Type: Spontaneous
  Country: BR (occurrence: BR)
  Receive Date: 20230420
  Receipt Date: 20230420
  Transmission Date: 20230722
  Serious: Yes (Death, Life-Threatening, Other)
  Sender: FDA-Public Use
  Company Number: BR-PFIZER INC-PV202300071605

PATIENT
  Age: 16 Year
  Sex: Female

DRUGS (1)
  1. CYTARABINE [Suspect]
     Active Substance: CYTARABINE
     Indication: Acute lymphocytic leukaemia
     Dosage: 1.5 MG/M2, 2X/DAY FOR 3 DAYS
     Route: 042

REACTIONS (2)
  - Sepsis [Fatal]
  - Toxic epidermal necrolysis [Unknown]
